FAERS Safety Report 5517610-0 (Version None)
Quarter: 2007Q4

REPORT INFORMATION
  Report Type: 
  Country: None (occurrence: None)
  Receive Date: 20071114
  Receipt Date: 20071105
  Transmission Date: 20080405
  Serious: Yes (Other)
  Sender: FDA-Public Use
  Company Number: US-PFIZER INC-2007093207

PATIENT
  Sex: Male
  Weight: 81.6 kg

DRUGS (15)
  1. CELEBREX [Suspect]
     Indication: ARTHRITIS
     Dates: start: 19990101, end: 20071101
  2. DIOVAN [Concomitant]
  3. ALL OTHER THERAPEUTIC PRODUCTS [Concomitant]
  4. ALL OTHER THERAPEUTIC PRODUCTS [Concomitant]
  5. SIMVASTATIN [Concomitant]
  6. METHOTREXATE [Concomitant]
  7. LEUCOVORIN CALCIUM [Concomitant]
  8. COSOPT [Concomitant]
  9. TRAVATAN [Concomitant]
  10. ALL OTHER THERAPEUTIC PRODUCTS [Concomitant]
  11. FLONASE [Concomitant]
  12. ATROVENT [Concomitant]
  13. NITROGLYCERIN [Concomitant]
  14. ACETYLSALICYLIC ACID SRT [Concomitant]
  15. PLAVIX [Concomitant]

REACTIONS (4)
  - ANAEMIA [None]
  - ANGIOPLASTY [None]
  - PAIN [None]
  - SPINAL LAMINECTOMY [None]
